FAERS Safety Report 6545855-X (Version None)
Quarter: 2010Q1

REPORT INFORMATION
  Report Type: 
  Country: None (occurrence: None)
  Receive Date: 20100121
  Receipt Date: 20100121
  Transmission Date: 20100710
  Serious: Yes (Hospitalization)
  Sender: FDA-Public Use
  Company Number: None

PATIENT
  Sex: Male
  Weight: 82.3 kg

DRUGS (4)
  1. DENILEUKIN [Suspect]
     Dosage: 1395 MCG
  2. RITUXIMAB (MOAB C2B8 ANTI CD20, CHIMERIC) [Suspect]
     Dosage: 708 MG
  3. LASIX [Concomitant]
  4. SIMVASTATIN [Concomitant]

REACTIONS (8)
  - ALANINE AMINOTRANSFERASE ABNORMAL [None]
  - ASPARTATE AMINOTRANSFERASE ABNORMAL [None]
  - BLOOD ALBUMIN ABNORMAL [None]
  - MALAISE [None]
  - OEDEMA [None]
  - PAIN [None]
  - THROMBOCYTOPENIA [None]
  - WEIGHT INCREASED [None]
